FAERS Safety Report 18664082 (Version 1)
Quarter: 2020Q4

REPORT INFORMATION
  Report Type: Spontaneous
  Country: GB (occurrence: VN)
  Receive Date: 20201225
  Receipt Date: 20201225
  Transmission Date: 20210114
  Serious: Yes (Other)
  Sender: FDA-Public Use
  Company Number: VN-ASTELLAS-2020US045767

PATIENT
  Age: 51 Year
  Sex: Female

DRUGS (1)
  1. TARCEVA [Suspect]
     Active Substance: ERLOTINIB HYDROCHLORIDE
     Indication: LUNG NEOPLASM MALIGNANT
     Dosage: UNK, UNKNOWN FREQ.
     Route: 065

REACTIONS (5)
  - Hepatic mass [Unknown]
  - Metastases to lung [Unknown]
  - Acne [Unknown]
  - Dyspnoea [Unknown]
  - Pain [Unknown]
